FAERS Safety Report 4600914-3 (Version None)
Quarter: 2005Q1

REPORT INFORMATION
  Report Type: 
  Country: None (occurrence: None)
  Receive Date: 20050127
  Receipt Date: 20041021
  Transmission Date: 20050727
  Serious: No
  Sender: FDA-Public Use
  Company Number: USA041081956

PATIENT
  Age: 8 Year
  Sex: Male
  Weight: 34 kg

DRUGS (1)
  1. STRATTERA [Suspect]
     Indication: DISTURBANCE IN ATTENTION
     Dosage: 18 MG DAY
     Dates: start: 20041020

REACTIONS (4)
  - AFFECT LABILITY [None]
  - CRYING [None]
  - NAUSEA [None]
  - SOMNOLENCE [None]
